FAERS Safety Report 18920733 (Version 3)
Quarter: 2025Q2

REPORT INFORMATION
  Report Type: Spontaneous
  Country: DE (occurrence: DE)
  Receive Date: 20210222
  Receipt Date: 20250403
  Transmission Date: 20250717
  Serious: Yes (Life-Threatening, Hospitalization, Other)
  Sender: CELLTRION
  Company Number: DE-CELLTRION INC.-2021DE001913

PATIENT

DRUGS (16)
  1. RITUXIMAB [Suspect]
     Active Substance: RITUXIMAB
     Indication: Mantle cell lymphoma stage IV
     Route: 041
  2. RITUXIMAB [Suspect]
     Active Substance: RITUXIMAB
     Dosage: 1400 MG, EVERY 1 WEEK/1400 MG (EVERY 8 WEEKS)
     Route: 058
     Dates: start: 201802
  3. RITUXIMAB [Suspect]
     Active Substance: RITUXIMAB
     Route: 058
  4. RITUXIMAB [Suspect]
     Active Substance: RITUXIMAB
     Indication: Mantle cell lymphoma stage IV
     Route: 058
     Dates: start: 201802
  5. IBRUTINIB [Suspect]
     Active Substance: IBRUTINIB
     Indication: Mantle cell lymphoma
     Route: 065
     Dates: start: 201802
  6. IBRUTINIB [Suspect]
     Active Substance: IBRUTINIB
     Indication: Mantle cell lymphoma stage IV
  7. IMBRUVICA [Suspect]
     Active Substance: IBRUTINIB
     Indication: Mantle cell lymphoma stage IV
     Route: 048
     Dates: start: 20180120
  8. IMBRUVICA [Suspect]
     Active Substance: IBRUTINIB
     Route: 065
     Dates: start: 201802
  9. IMBRUVICA [Suspect]
     Active Substance: IBRUTINIB
     Route: 065
  10. CYCLOPHOSPHAMIDE [Suspect]
     Active Substance: CYCLOPHOSPHAMIDE
     Indication: Mantle cell lymphoma stage IV
     Route: 065
  11. DOXORUBICIN HYDROCHLORIDE [Suspect]
     Active Substance: DOXORUBICIN HYDROCHLORIDE
     Indication: Mantle cell lymphoma stage IV
     Route: 065
  12. VINCRISTINE SULFATE [Suspect]
     Active Substance: VINCRISTINE SULFATE
     Indication: Mantle cell lymphoma stage IV
     Route: 065
  13. PREDNISONE [Suspect]
     Active Substance: PREDNISONE
     Indication: Mantle cell lymphoma stage IV
     Route: 065
  14. DEXAMETHASONE [Suspect]
     Active Substance: DEXAMETHASONE
     Indication: Mantle cell lymphoma stage IV
     Route: 065
  15. CYTARABINE [Suspect]
     Active Substance: CYTARABINE
     Indication: Mantle cell lymphoma stage IV
     Route: 065
  16. CISPLATIN [Suspect]
     Active Substance: CISPLATIN
     Indication: Mantle cell lymphoma stage IV
     Route: 065

REACTIONS (17)
  - Disseminated enteroviral infection [Recovered/Resolved]
  - Enterovirus infection [Recovered/Resolved]
  - Hepatitis [Recovering/Resolving]
  - Myositis [Recovering/Resolving]
  - Myocarditis [Recovering/Resolving]
  - Rhabdomyolysis [Recovering/Resolving]
  - Personality change [Recovering/Resolving]
  - Somnolence [Recovering/Resolving]
  - Encephalitis [Recovered/Resolved]
  - Generalised oedema [Recovering/Resolving]
  - Encephalitis [Recovering/Resolving]
  - Gastroenteritis [Recovering/Resolving]
  - Erythema [Recovering/Resolving]
  - Acute kidney injury [Recovering/Resolving]
  - Atrial fibrillation [Recovering/Resolving]
  - Myalgia [Recovering/Resolving]
  - Intentional product use issue [Unknown]

NARRATIVE: CASE EVENT DATE: 20180801
